FAERS Safety Report 5179185-8 (Version None)
Quarter: 2006Q4

REPORT INFORMATION
  Report Type: 
  Country: None (occurrence: None)
  Receive Date: 20061211
  Receipt Date: 20061201
  Transmission Date: 20070319
  Serious: Yes (Other)
  Sender: FDA-Public Use
  Company Number: HQWYE152204DEC06

PATIENT
  Age: 35 Year
  Sex: Female

DRUGS (4)
  1. EFFEXOR XR [Suspect]
     Indication: DEPRESSION
     Dosage: 225 MG 1X PER 1 DAY, ORAL
  2. CLONAZEPAM [Concomitant]
  3. ESTRADIOL [Concomitant]
  4. AMBIEN [Concomitant]

REACTIONS (1)
  - OPTIC NEUROPATHY [None]
